FAERS Safety Report 23561473 (Version 1)
Quarter: 2024Q1

REPORT INFORMATION
  Report Type: Spontaneous
  Country: DE (occurrence: DE)
  Receive Date: 20240225
  Receipt Date: 20240225
  Transmission Date: 20240410
  Serious: Yes (Death, Other)
  Sender: FDA-Public Use
  Company Number: DE-009507513-2312DEU009464

PATIENT
  Age: 3 Year
  Sex: Male

DRUGS (14)
  1. CYCLOPHOSPHAMIDE [Suspect]
     Active Substance: CYCLOPHOSPHAMIDE
     Indication: Neuroblastoma
     Dosage: UNK
     Route: 065
  2. CYCLOPHOSPHAMIDE [Suspect]
     Active Substance: CYCLOPHOSPHAMIDE
     Indication: Metastases to central nervous system
  3. DASATINIB [Suspect]
     Active Substance: DASATINIB
     Indication: Neuroblastoma
     Dosage: UNK
     Route: 065
  4. DASATINIB [Suspect]
     Active Substance: DASATINIB
     Indication: Metastases to central nervous system
  5. ETOPOSIDE [Suspect]
     Active Substance: ETOPOSIDE
     Indication: Neuroblastoma
     Dosage: UNK
     Route: 065
  6. ETOPOSIDE [Suspect]
     Active Substance: ETOPOSIDE
     Indication: Metastases to central nervous system
  7. IRINOTECAN [Suspect]
     Active Substance: IRINOTECAN
     Indication: Neuroblastoma
     Dosage: UNK
     Route: 065
  8. IRINOTECAN [Suspect]
     Active Substance: IRINOTECAN
     Indication: Metastases to central nervous system
  9. RAPAMYCIN [Suspect]
     Active Substance: SIROLIMUS
     Indication: Neuroblastoma
     Dosage: UNK
     Route: 065
  10. RAPAMYCIN [Suspect]
     Active Substance: SIROLIMUS
     Indication: Metastases to central nervous system
  11. TEMOZOLOMIDE [Suspect]
     Active Substance: TEMOZOLOMIDE
     Indication: Neuroblastoma
     Dosage: UNK
     Route: 048
  12. TEMOZOLOMIDE [Suspect]
     Active Substance: TEMOZOLOMIDE
     Indication: Metastases to central nervous system
  13. TOPOTECAN [Suspect]
     Active Substance: TOPOTECAN HYDROCHLORIDE
     Indication: Neuroblastoma
     Dosage: UNK
     Route: 065
  14. TOPOTECAN [Suspect]
     Active Substance: TOPOTECAN HYDROCHLORIDE
     Indication: Metastases to central nervous system

REACTIONS (1)
  - Escherichia sepsis [Fatal]
